FAERS Safety Report 8041896-4 (Version None)
Quarter: 2012Q1

REPORT INFORMATION
  Report Type: 
  Country: None (occurrence: None)
  Receive Date: 20120112
  Receipt Date: 20120112
  Transmission Date: 20120608
  Serious: No
  Sender: FDA-Public Use
  Company Number: None

PATIENT
  Sex: Female

DRUGS (1)
  1. AVELOX [Suspect]
     Indication: PNEUMONIA
     Dosage: 400MG
     Route: 041
     Dates: start: 20120110, end: 20120110

REACTIONS (2)
  - HYPERSENSITIVITY [None]
  - INFUSION SITE PRURITUS [None]
